FAERS Safety Report 5536108-7 (Version None)
Quarter: 2007Q4

REPORT INFORMATION
  Report Type: 
  Country: None (occurrence: None)
  Receive Date: 20071206
  Receipt Date: 20071203
  Transmission Date: 20080405
  Serious: Yes (Death, Hospitalization)
  Sender: FDA-Public Use
  Company Number: US-SANOFI-SYNTHELABO-F03200700220

PATIENT
  Sex: Female
  Weight: 56.7 kg

DRUGS (14)
  1. IMODIUM [Concomitant]
     Dosage: UNK
     Route: 048
  2. LORAZEPAM [Concomitant]
     Dosage: UNK
     Route: 065
  3. COMPAZINE [Concomitant]
     Dosage: UNK
     Route: 065
  4. VICODIN [Concomitant]
     Dosage: UNK
     Route: 048
  5. MORPHINE [Concomitant]
     Dosage: UNK
     Route: 065
  6. DECADRON [Concomitant]
     Dosage: UNK
     Route: 065
  7. ASPIRIN [Concomitant]
     Dosage: UNK
     Route: 065
  8. ZOLOFT [Concomitant]
     Dosage: UNK
     Route: 048
  9. MEGACE [Concomitant]
     Dosage: UNK
     Route: 048
  10. SANDOSTATIN LAR [Concomitant]
     Dosage: UNK
     Route: 065
  11. LEUCOVORIN CALCIUM [Suspect]
     Indication: NEUROENDOCRINE TUMOUR
     Dosage: 200 MG/M2 (320 MG) EVERY 2 WEEKS
     Route: 042
     Dates: start: 20071030, end: 20071030
  12. FLUOROURACIL [Suspect]
     Indication: NEUROENDOCRINE TUMOUR
     Dosage: 400 MG/M2 + 1200 MG/M2/DAY (0 MG + 1920 MG) EVERY 2 WEEKS
     Route: 042
     Dates: start: 20071030, end: 20071030
  13. BEVACIZUMAB [Suspect]
     Indication: NEUROENDOCRINE TUMOUR
     Dosage: 5 MG/KG (284 MG) EVERY 2 WEEKS
     Route: 042
     Dates: start: 20071030, end: 20071030
  14. OXALIPLATIN [Suspect]
     Indication: NEUROENDOCRINE TUMOUR
     Dosage: 85 MG/M2 (104 MG) EVERY 2 WEEKS
     Route: 042
     Dates: start: 20071030, end: 20071030

REACTIONS (7)
  - DIARRHOEA [None]
  - INTESTINAL PERFORATION [None]
  - LACTIC ACIDOSIS [None]
  - MYOCARDIAL INFARCTION [None]
  - NEUTROPENIA [None]
  - SEPSIS [None]
  - WHITE BLOOD CELL COUNT DECREASED [None]
